FAERS Safety Report 7505674-4 (Version None)
Quarter: 2011Q2

REPORT INFORMATION
  Report Type: 
  Country: None (occurrence: None)
  Receive Date: 20110404
  Receipt Date: 20100720
  Transmission Date: 20111010
  Serious: Yes (Other)
  Sender: FDA-Public Use
  Company Number: 010522

PATIENT
  Age: 2 Year
  Sex: Female

DRUGS (6)
  1. CYCLOSPORINE [Concomitant]
  2. ANTI-THYMOCYTE GLOBULIN NOS [Concomitant]
  3. PREDNISONE [Concomitant]
  4. BUSULFEX [Suspect]
     Indication: STEM CELL TRANSPLANT
     Dosage: 0.8 MG/KG, Q6HR, INTRAVENOUS
     Route: 042
  5. CYCLOPHOSPHAMIDE [Concomitant]
  6. PHENYTOIN [Concomitant]

REACTIONS (2)
  - ACUTE GRAFT VERSUS HOST DISEASE [None]
  - GRAFT VERSUS HOST DISEASE [None]
